FAERS Safety Report 4628165-7 (Version None)
Quarter: 2005Q2

REPORT INFORMATION
  Report Type: 
  Country: None (occurrence: None)
  Receive Date: 20050401
  Receipt Date: 20050318
  Transmission Date: 20051028
  Serious: Yes (Hospitalization)
  Sender: FDA-Public Use
  Company Number: 2005-FF-00191FF

PATIENT
  Age: 40 Year
  Sex: Female

DRUGS (6)
  1. VIRAMUNE [Suspect]
     Indication: HIV INFECTION
     Dosage: 1 IN 1 D, PO
     Route: 048
     Dates: start: 20040223, end: 20050114
  2. EPIVIR [Concomitant]
  3. ZERIT [Concomitant]
  4. LEVOTHYROXINE (LEVOTHYROXINE SODIUM) [Concomitant]
  5. TRANDATE [Concomitant]
  6. FLUCONAZOLE [Concomitant]

REACTIONS (4)
  - CYTOLYTIC HEPATITIS [None]
  - FATIGUE [None]
  - HYPERLACTACIDAEMIA [None]
  - MITOCHONDRIAL CYTOPATHY [None]
